FAERS Safety Report 12133440 (Version 3)
Quarter: 2016Q2

REPORT INFORMATION
  Report Type: Spontaneous
  Country: JP (occurrence: JP)
  Receive Date: 20160301
  Receipt Date: 20160525
  Transmission Date: 20160815
  Serious: Yes (Death)
  Sender: FDA-Public Use
  Company Number: JP-PURDUE PHARMA-GBR-2016-0034348

PATIENT
  Age: 80 Year
  Sex: Female

DRUGS (1)
  1. OXYCODONE HYDROCHLORIDE. [Suspect]
     Active Substance: OXYCODONE HYDROCHLORIDE
     Indication: CANCER PAIN
     Dosage: UNK
     Route: 041
     Dates: start: 201602, end: 201602

REACTIONS (2)
  - Hepatic cancer [Fatal]
  - Vomiting [Unknown]

NARRATIVE: CASE EVENT DATE: 201602
